FAERS Safety Report 7074783-9 (Version None)
Quarter: 2010Q4

REPORT INFORMATION
  Report Type: 
  Country: None (occurrence: None)
  Receive Date: 20101029
  Receipt Date: 20101018
  Transmission Date: 20110411
  Serious: Yes (Hospitalization)
  Sender: FDA-Public Use
  Company Number: US-ELI_LILLY_AND_COMPANY-US201004007924

PATIENT
  Age: 56 Year
  Sex: Male

DRUGS (5)
  1. ALIMTA [Suspect]
     Indication: LUNG NEOPLASM MALIGNANT
     Dosage: 975 MG, UNK
     Dates: start: 20100312
  2. FOLIC ACID [Concomitant]
     Indication: SUPPLEMENTATION THERAPY
  3. VITAMIN B-12 [Concomitant]
     Indication: SUPPLEMENTATION THERAPY
  4. DEXAMETHASONE [Concomitant]
     Dosage: UNK, DAY BEFORE, DAY OF, AND DAY FOLLOWING CHEMOTHERAPY
  5. BENADRYL [Concomitant]

REACTIONS (1)
  - SYSTEMIC INFLAMMATORY RESPONSE SYNDROME [None]
